FAERS Safety Report 6234699-4 (Version None)
Quarter: 2009Q2

REPORT INFORMATION
  Report Type: 
  Country: None (occurrence: None)
  Receive Date: 20090615
  Receipt Date: 20090326
  Transmission Date: 20091009
  Serious: No
  Sender: FDA-Public Use
  Company Number: DSA_33417_2009

PATIENT
  Sex: Male
  Weight: 74.8435 kg

DRUGS (10)
  1. XENAZINE [Suspect]
     Indication: DYSTONIA
     Dosage: (12.5 MG IN THE EVENING)
     Dates: start: 20090227
  2. CLONAZEPAM [Concomitant]
  3. PRAVASTATIN [Concomitant]
  4. ASPIRIN [Concomitant]
  5. ACIDOPHILUS [Concomitant]
  6. AMLODIPINE [Concomitant]
  7. KEPPRA [Concomitant]
  8. ENSURE /01757701/ [Concomitant]
  9. OMEPRAZOLE [Concomitant]
  10. BENEFIBER /01648102/ [Concomitant]

REACTIONS (1)
  - RASH [None]
